FAERS Safety Report 6036976-9 (Version None)
Quarter: 2009Q1

REPORT INFORMATION
  Report Type: 
  Country: None (occurrence: None)
  Receive Date: 20090114
  Receipt Date: 20090105
  Transmission Date: 20090719
  Serious: Yes (Death)
  Sender: FDA-Public Use
  Company Number: BR-AVENTIS-200910242GDDC

PATIENT
  Age: 81 Year
  Sex: Female
  Weight: 60 kg

DRUGS (12)
  1. LANTUS [Suspect]
     Route: 058
  2. OPTIPEN (INSULIN PUMP) [Suspect]
  3. FOLIC ACID [Concomitant]
     Dosage: DOSE QUANTITY: 1
  4. CILOSTAZOL [Concomitant]
     Dosage: DOSE QUANTITY: 1
  5. AMITRIPTYLINE HCL [Concomitant]
     Dosage: DOSE QUANTITY: 1
  6. CARVEDILOL [Concomitant]
     Dosage: DOSE QUANTITY: 2
  7. LASIX [Concomitant]
     Dosage: DOSE QUANTITY: 1
  8. OMEPRAZOLE [Concomitant]
     Dosage: DOSE QUANTITY: 1
     Route: 048
  9. LIPITOR [Concomitant]
     Dosage: DOSE QUANTITY: 1
  10. REGULAR HUMAN INSULIN [Concomitant]
     Indication: TYPE 2 DIABETES MELLITUS
     Dosage: DOSE: 2 UNITS IF GLUCOSE } 200
  11. HUMULIN N [Concomitant]
     Route: 058
  12. HUMULIN N [Concomitant]
     Route: 058

REACTIONS (3)
  - ABDOMINAL SEPSIS [None]
  - MULTI-ORGAN FAILURE [None]
  - RENAL FAILURE CHRONIC [None]
